FAERS Safety Report 10075644 (Version 2)
Quarter: 2014Q2

REPORT INFORMATION
  Report Type: Spontaneous
  Country: JP (occurrence: JP)
  Receive Date: 20140414
  Receipt Date: 20140428
  Transmission Date: 20141212
  Serious: Yes (Death)
  Sender: FDA-Public Use
  Company Number: JP-JNJFOC-20140406639

PATIENT
  Age: 81 Year
  Sex: Male
  Weight: 54.88 kg

DRUGS (12)
  1. XARELTO [Suspect]
     Indication: CEREBROVASCULAR ACCIDENT PROPHYLAXIS
     Route: 048
     Dates: start: 20140320, end: 20140327
  2. XARELTO [Suspect]
     Indication: ATRIAL FIBRILLATION
     Route: 048
     Dates: start: 20140320, end: 20140327
  3. MAINTATE [Concomitant]
     Indication: CARDIAC FAILURE
     Route: 048
     Dates: start: 20140310, end: 20140327
  4. TANATRIL [Concomitant]
     Indication: CARDIAC FAILURE
     Route: 048
     Dates: start: 20130310, end: 20140327
  5. DIART [Concomitant]
     Indication: CARDIAC FAILURE
     Route: 048
     Dates: start: 20140310, end: 20140327
  6. SELARA (EPLERENONE) [Concomitant]
     Indication: CARDIAC FAILURE
     Route: 048
     Dates: start: 20140310, end: 20140327
  7. BAYASPIRIN [Concomitant]
     Route: 048
     Dates: start: 20140310, end: 20140327
  8. JANUVIA [Concomitant]
     Indication: DIABETES MELLITUS
     Route: 048
     Dates: start: 20140310, end: 20140327
  9. NIVADIL [Concomitant]
     Route: 048
  10. GASTER D [Concomitant]
     Route: 048
  11. URSO [Concomitant]
     Route: 048
  12. CARPERITIDE [Concomitant]
     Indication: CARDIAC FAILURE CHRONIC
     Route: 065
     Dates: start: 20140310

REACTIONS (1)
  - Acute interstitial pneumonitis [Fatal]
